FAERS Safety Report 9300785 (Version 1)
Quarter: 2013Q2

REPORT INFORMATION
  Report Type: Spontaneous
  Country: US (occurrence: None)
  Receive Date: 20130520
  Receipt Date: 20130520
  Transmission Date: 20140414
  Serious: Yes (Other)
  Sender: FDA-Public Use
  Company Number: None

PATIENT
  Age: 36 Year
  Sex: Female
  Weight: 58.51 kg

DRUGS (1)
  1. VIIBRYD [Suspect]

REACTIONS (6)
  - Tinnitus [None]
  - Paraesthesia [None]
  - Hallucinations, mixed [None]
  - Fear [None]
  - Muscle twitching [None]
  - Dyskinesia [None]
